FAERS Safety Report 5510101-2 (Version None)
Quarter: 2007Q4

REPORT INFORMATION
  Report Type: 
  Country: None (occurrence: None)
  Receive Date: 20071108
  Receipt Date: 20071029
  Transmission Date: 20080405
  Serious: Yes (Hospitalization, Other)
  Sender: FDA-Public Use
  Company Number: US-JNJFOC-20071007960

PATIENT
  Sex: Female

DRUGS (3)
  1. DURAGESIC-100 [Suspect]
     Route: 062
  2. DURAGESIC-100 [Suspect]
     Dosage: 1X 100UG/HR PLUS 1X 50UG/HR PATCHES
     Route: 062
  3. DURAGESIC-100 [Suspect]
     Indication: PAIN
     Dosage: 2X 100UG/HR PATCHES
     Route: 062

REACTIONS (7)
  - BLOOD TEST ABNORMAL [None]
  - FLUID RETENTION [None]
  - GALLBLADDER DISORDER [None]
  - HERNIA [None]
  - INAPPROPRIATE SCHEDULE OF DRUG ADMINISTRATION [None]
  - OVARIAN NEOPLASM [None]
  - UMBILICAL HERNIA PERFORATION [None]
